FAERS Safety Report 6272942-6 (Version None)
Quarter: 2009Q3

REPORT INFORMATION
  Report Type: 
  Country: None (occurrence: None)
  Receive Date: 20090720
  Receipt Date: 20090706
  Transmission Date: 20100115
  Serious: Yes (Hospitalization, Other)
  Sender: FDA-Public Use
  Company Number: US-RB-017089-09

PATIENT
  Sex: Female
  Weight: 133.65 kg

DRUGS (4)
  1. SUBOXONE [Suspect]
     Indication: PAIN
     Route: 060
     Dates: start: 20090501, end: 20090705
  2. CYMBALTA [Concomitant]
     Dosage: DOSING INFORMATION UNKNOWN
     Route: 065
     Dates: start: 20090101
  3. INSULIN [Concomitant]
     Dosage: DOSING INFORMATION UNKNOWN
     Route: 065
     Dates: start: 19980101
  4. VYTORIN [Concomitant]
     Dosage: DOSING INFORMATION UNKNOWN
     Route: 065

REACTIONS (2)
  - CEREBROVASCULAR ACCIDENT [None]
  - SOMNOLENCE [None]
